FAERS Safety Report 9124359 (Version 2)
Quarter: 2014Q1

REPORT INFORMATION
  Report Type: Report from Study
  Country: BD (occurrence: BD)
  Receive Date: 20130116
  Receipt Date: 20140128
  Transmission Date: 20141002
  Serious: Yes (Death, Hospitalization)
  Sender: FDA-Public Use
  Company Number: PHHY2013BD003583

PATIENT
  Age: 90 Year
  Sex: Female

DRUGS (1)
  1. EXELON PATCH [Suspect]
     Indication: DEMENTIA
     Dosage: 5 CM (4.6 MG/24 HOURS)
     Route: 062
     Dates: start: 201008, end: 201101

REACTIONS (3)
  - Pyrexia [Fatal]
  - Cerebrovascular accident [Unknown]
  - General physical health deterioration [Unknown]
